FAERS Safety Report 16140768 (Version 2)
Quarter: 2020Q1

REPORT INFORMATION
  Report Type: Report from Study
  Country: US (occurrence: US)
  Receive Date: 20190401
  Receipt Date: 20200106
  Transmission Date: 20200409
  Serious: Yes (Hospitalization)
  Sender: FDA-Public Use
  Company Number: US-ROCHE-2288674

PATIENT
  Age: 69 Year
  Sex: Male
  Weight: 63.56 kg

DRUGS (4)
  1. OCREVUS [Suspect]
     Active Substance: OCRELIZUMAB
     Indication: PRIMARY PROGRESSIVE MULTIPLE SCLEROSIS
     Dosage: ONGOING: UNKNOWN
     Route: 065
     Dates: start: 201707
  2. GABAPENTIN. [Concomitant]
     Active Substance: GABAPENTIN
     Indication: BACK PAIN
     Dosage: ONGOING: YES
     Route: 065
  3. BACLOFEN. [Concomitant]
     Active Substance: BACLOFEN
     Dosage: ONGOING: YES
     Route: 065
  4. OCREVUS [Suspect]
     Active Substance: OCRELIZUMAB
     Dosage: ONGOING: UNKNOWN
     Route: 065

REACTIONS (7)
  - Clostridium difficile infection [Unknown]
  - Head injury [Recovered/Resolved]
  - Asthenia [Recovered/Resolved]
  - Fall [Unknown]
  - Body height decreased [Not Recovered/Not Resolved]
  - Immunosuppression [Not Recovered/Not Resolved]
  - Abdominal injury [Unknown]

NARRATIVE: CASE EVENT DATE: 20190222
